FAERS Safety Report 6524150-9 (Version None)
Quarter: 2009Q4

REPORT INFORMATION
  Report Type: 
  Country: None (occurrence: None)
  Receive Date: 20091231
  Receipt Date: 20091209
  Transmission Date: 20100525
  Serious: No
  Sender: FDA-Public Use
  Company Number: US-BAYER-200942917NA

PATIENT
  Age: 38 Year
  Sex: Female
  Weight: 75 kg

DRUGS (7)
  1. MAGNEVIST [Suspect]
     Indication: ANGIOGRAM
     Dosage: TOTAL DAILY DOSE: 15 ML  UNIT DOSE: 50 ML
     Route: 042
     Dates: start: 20091209, end: 20091209
  2. METHADONE [Concomitant]
  3. HYDROCODONE [Concomitant]
  4. FLEXERIL [Concomitant]
  5. GABAPENTIN [Concomitant]
  6. MOBIC [Concomitant]
  7. ANTI-INFLAMMATORY [Concomitant]

REACTIONS (5)
  - NASAL CONGESTION [None]
  - ORAL DISCOMFORT [None]
  - PRURITUS [None]
  - SNEEZING [None]
  - URTICARIA [None]
